FAERS Safety Report 9590261 (Version 1)
Quarter: 2013Q4

REPORT INFORMATION
  Report Type: Report from Study
  Country: BE (occurrence: BE)
  Receive Date: 20131003
  Receipt Date: 20131003
  Transmission Date: 20140711
  Serious: Yes (Hospitalization)
  Sender: FDA-Public Use
  Company Number: BE-MERCK-1309BEL014037

PATIENT
  Age: 59 Year
  Sex: Female
  Weight: 80 kg

DRUGS (4)
  1. DEXAMETHASONE [Suspect]
     Indication: PNEUMONITIS
     Dosage: 10 MG, QD
     Route: 048
     Dates: start: 20130403, end: 20130410
  2. DEXAMETHASONE [Suspect]
     Dosage: 15 MG, QD
     Route: 048
     Dates: start: 20130411
  3. EVEROLIMUS [Suspect]
     Indication: BREAST CANCER METASTATIC
     Dosage: 10 MG, QD
     Route: 048
     Dates: start: 20130207, end: 20130329
  4. EXEMESTANE [Suspect]
     Indication: BREAST CANCER METASTATIC
     Dosage: 25 MG, QD
     Route: 048
     Dates: start: 20130207

REACTIONS (1)
  - Herpes zoster [Recovered/Resolved]
